FAERS Safety Report 7801698-8 (Version None)
Quarter: 2011Q4

REPORT INFORMATION
  Report Type: 
  Country: None (occurrence: None)
  Receive Date: 20111007
  Receipt Date: 20110928
  Transmission Date: 20120403
  Serious: Yes (Hospitalization, Other)
  Sender: FDA-Public Use
  Company Number: JP-ELI_LILLY_AND_COMPANY-JP201109001755

PATIENT
  Age: 55 Year
  Sex: Female

DRUGS (3)
  1. GEMZAR [Suspect]
     Indication: PANCREATIC CARCINOMA
     Dosage: 1000 MG/M2, UNK
     Route: 042
     Dates: start: 20100716
  2. GEMZAR [Suspect]
     Dosage: 800 MG/M2, UNK
     Route: 042
     Dates: start: 20110601, end: 20110727
  3. TS 1 [Concomitant]
     Indication: PANCREATIC CARCINOMA
     Dosage: UNK
     Dates: start: 20110801

REACTIONS (5)
  - DYSURIA [None]
  - MUSCULAR WEAKNESS [None]
  - DIPLEGIA [None]
  - METASTASES TO SPINE [None]
  - HYPOAESTHESIA [None]
